FAERS Safety Report 17177036 (Version 1)
Quarter: 2019Q4

REPORT INFORMATION
  Report Type: Other
  Country: IT (occurrence: IT)
  Receive Date: 20191219
  Receipt Date: 20191219
  Transmission Date: 20200122
  Serious: Yes (Hospitalization)
  Sender: FDA-Public Use
  Company Number: IT-HEALTHCARE PHARMACEUTICALS LTD.-2078003

PATIENT
  Age: 34 Year
  Sex: Male

DRUGS (7)
  1. ETOPOSIDE. [Suspect]
     Active Substance: ETOPOSIDE
     Route: 065
  2. DOXORUBICIN HYDROCHLORIDE. [Suspect]
     Active Substance: DOXORUBICIN HYDROCHLORIDE
     Indication: T-CELL LYMPHOMA
     Route: 065
  3. MEROPENEM. [Concomitant]
     Active Substance: MEROPENEM
     Route: 065
  4. STEROIDS [Suspect]
     Active Substance: UNSPECIFIED INGREDIENT
     Route: 065
  5. CYCLOPHOSPHAMIDE. [Suspect]
     Active Substance: CYCLOPHOSPHAMIDE
     Route: 065
  6. VINCRISTINE SULFATE. [Suspect]
     Active Substance: VINCRISTINE SULFATE
     Route: 065
  7. COLISTIN [Concomitant]
     Active Substance: COLISTIN
     Route: 065

REACTIONS (3)
  - Sepsis [Recovered/Resolved]
  - Granulocyte count decreased [Recovered/Resolved]
  - Dehiscence [Recovered/Resolved]
